FAERS Safety Report 8145598-5 (Version None)
Quarter: 2012Q1

REPORT INFORMATION
  Report Type: 
  Country: None (occurrence: None)
  Receive Date: 20120217
  Receipt Date: 20110402
  Transmission Date: 20120608
  Serious: No
  Sender: FDA-Public Use
  Company Number: US-ABBOTT-11P-163-0715946-00

PATIENT
  Sex: Male
  Weight: 104.42 kg

DRUGS (7)
  1. ASPIRIN [Concomitant]
     Indication: PRODUCT USED FOR UNKNOWN INDICATION
  2. AMLODIPINE [Concomitant]
     Indication: PRODUCT USED FOR UNKNOWN INDICATION
  3. METOPROLOL TARTRATE [Concomitant]
     Indication: PRODUCT USED FOR UNKNOWN INDICATION
  4. NEXIUM [Concomitant]
     Indication: PRODUCT USED FOR UNKNOWN INDICATION
  5. SIMCOR [Suspect]
     Indication: PRODUCT USED FOR UNKNOWN INDICATION
  6. CLARINEX-D [Concomitant]
     Indication: PRODUCT USED FOR UNKNOWN INDICATION
  7. LUNESTA [Concomitant]
     Indication: INSOMNIA

REACTIONS (3)
  - INITIAL INSOMNIA [None]
  - PRURITUS [None]
  - MIDDLE INSOMNIA [None]
